FAERS Safety Report 4618767-6 (Version None)
Quarter: 2005Q1

REPORT INFORMATION
  Report Type: 
  Country: None (occurrence: None)
  Receive Date: 20050323
  Receipt Date: 20050310
  Transmission Date: 20050727
  Serious: Yes (Death)
  Sender: FDA-Public Use
  Company Number: 2005043618

PATIENT
  Age: 30 Year
  Sex: Female
  Weight: 127.0072 kg

DRUGS (8)
  1. GEODON [Suspect]
     Indication: ILL-DEFINED DISORDER
     Dosage: 200 MG (2 IN 1 D), ORAL
     Route: 048
  2. AXOTAL (OLD FORM) (BUTALBITAL, CAFFEINE, PARACETAMOL) [Concomitant]
  3. RISPERDAL [Concomitant]
  4. METFORMIN HCL [Concomitant]
  5. TRAZODONE 9TRAZODONE) [Concomitant]
  6. LAMOTRIGINE [Concomitant]
  7. QUETIAPINE FUMARATE (QUETIAPINE FUMARATE) [Concomitant]
  8. MODAFINIL [Concomitant]

REACTIONS (1)
  - DEATH [None]
